FAERS Safety Report 13780757 (Version 1)
Quarter: 2017Q3

REPORT INFORMATION
  Report Type: Spontaneous
  Country: US (occurrence: US)
  Receive Date: 20170721
  Receipt Date: 20170721
  Transmission Date: 20171127
  Serious: Yes (Disabling)
  Sender: FDA-Public Use
  Company Number: None

PATIENT
  Age: 57 Year
  Sex: Female
  Weight: 56.25 kg

DRUGS (3)
  1. NAMENDA [Suspect]
     Active Substance: MEMANTINE HYDROCHLORIDE
     Indication: OFF LABEL USE
     Dates: start: 20161115, end: 20170509
  2. NAMENDA [Suspect]
     Active Substance: MEMANTINE HYDROCHLORIDE
     Indication: VASCULAR HEADACHE
     Dates: start: 20161115, end: 20170509
  3. NAMENDA [Suspect]
     Active Substance: MEMANTINE HYDROCHLORIDE
     Indication: BEHCET^S SYNDROME
     Dates: start: 20161115, end: 20170509

REACTIONS (6)
  - Confusional state [None]
  - Depression [None]
  - Behcet^s syndrome [None]
  - Blood pressure increased [None]
  - Hunger [None]
  - Weight increased [None]

NARRATIVE: CASE EVENT DATE: 20170201
